FAERS Safety Report 24716277 (Version 2)
Quarter: 2024Q4

REPORT INFORMATION
  Report Type: Report from Study
  Country: ES (occurrence: ES)
  Receive Date: 20241210
  Receipt Date: 20241224
  Transmission Date: 20250114
  Serious: Yes (Life-Threatening, Hospitalization)
  Sender: BAUSCH AND LOMB
  Company Number: ES-ABBVIE-5946033

PATIENT
  Age: 55 Year
  Sex: Female

DRUGS (9)
  1. AZATHIOPRINE [Suspect]
     Active Substance: AZATHIOPRINE
     Indication: Colitis ulcerative
     Route: 048
     Dates: start: 20090308, end: 20190515
  2. HUMIRA [Suspect]
     Active Substance: ADALIMUMAB
     Indication: Colitis ulcerative
     Route: 058
     Dates: start: 20140507, end: 20160208
  3. HUMIRA [Suspect]
     Active Substance: ADALIMUMAB
     Route: 058
     Dates: start: 20170125, end: 20200115
  4. HUMIRA [Suspect]
     Active Substance: ADALIMUMAB
     Route: 058
     Dates: start: 20200116, end: 20220329
  5. HUMIRA [Suspect]
     Active Substance: ADALIMUMAB
     Route: 058
     Dates: start: 20220330, end: 202302
  6. HUMIRA [Suspect]
     Active Substance: ADALIMUMAB
     Route: 058
     Dates: end: 20231004
  7. SULFASALAZINE [Concomitant]
     Active Substance: SULFASALAZINE
     Indication: Colitis ulcerative
     Route: 048
     Dates: start: 20160208
  8. USTEKINUMAB [Concomitant]
     Active Substance: USTEKINUMAB
     Indication: Colitis ulcerative
     Route: 058
     Dates: start: 20230216
  9. USTEKINUMAB [Concomitant]
     Active Substance: USTEKINUMAB
     Dosage: ONE TIME
     Route: 042
     Dates: start: 20231005, end: 20231005

REACTIONS (2)
  - Pyelonephritis [Recovered/Resolved]
  - Septic shock [Recovered/Resolved]

NARRATIVE: CASE EVENT DATE: 20230303
